FAERS Safety Report 7527782 (Version 3)
Quarter: 2020Q3

REPORT INFORMATION
  Report Type: Report from Study
  Country: SG (occurrence: SG)
  Receive Date: 20100804
  Receipt Date: 20100917
  Transmission Date: 20201104
  Serious: Yes (Hospitalization)
  Sender: FDA-Public Use
  Company Number: SG-WYE-H16528710

PATIENT
  Age: 48 Year
  Sex: Male
  Weight: 85.9 kg

DRUGS (17)
  1. CELECOXIB. [Concomitant]
     Active Substance: CELECOXIB
     Indication: INFECTION
     Dates: start: 20100726
  2. CELECOXIB. [Concomitant]
     Active Substance: CELECOXIB
     Indication: PROPHYLAXIS
  3. PREGABALIN. [Concomitant]
     Active Substance: PREGABALIN
     Indication: ABDOMINAL PAIN
     Dates: start: 20100709
  4. ACICLOVIR [Concomitant]
     Active Substance: ACYCLOVIR
     Indication: HERPES ZOSTER
     Dates: start: 20100430
  5. LACTULOSE. [Concomitant]
     Active Substance: LACTULOSE
     Indication: CONSTIPATION
     Dosage: 10 ML TDS/PRN
     Dates: start: 20100701
  6. DEXAMETHASONE. [Suspect]
     Active Substance: DEXAMETHASONE
     Indication: NON-HODGKIN^S LYMPHOMA
     Route: 048
     Dates: start: 20100531
  7. RITUXIMAB. [Suspect]
     Active Substance: RITUXIMAB
     Indication: NON-HODGKIN^S LYMPHOMA
     Dosage: 375 MG/M^2 ONCE IN CYCLE 3
     Route: 042
     Dates: start: 20100531
  8. PARACETAMOL [Concomitant]
     Active Substance: ACETAMINOPHEN
     Indication: ABDOMINAL PAIN
     Dosage: 1GM QD6/PRN
     Dates: start: 20100508
  9. GEMCITABINE. [Suspect]
     Active Substance: GEMCITABINE
     Indication: NON-HODGKIN^S LYMPHOMA
     Dosage: 500MG /M^2 ONCE IN CYCLE 3
     Route: 042
     Dates: start: 20100531
  10. MEGESTROL ACETATE. [Concomitant]
     Active Substance: MEGESTROL ACETATE
     Dates: start: 20100713
  11. INOTUZUMAB OZOGAMICIN [Suspect]
     Active Substance: INOTUZUMAB OZOGAMICIN
     Indication: NON-HODGKIN^S LYMPHOMA
     Dosage: 0.8 MG/M^2 ONCE IN CYCLE 3
     Route: 042
     Dates: start: 20100531
  12. AMITRIPTYLINE [Concomitant]
     Active Substance: AMITRIPTYLINE
     Indication: ABDOMINAL PAIN
     Dates: start: 20100709
  13. CISPLATIN. [Suspect]
     Active Substance: CISPLATIN
     Indication: NON-HODGKIN^S LYMPHOMA
     Dosage: 37.5 MG/M^2 ONCE IN CYCLE 3
     Route: 042
     Dates: start: 20100531
  14. FAMOTIDINE. [Concomitant]
     Active Substance: FAMOTIDINE
     Indication: GASTRIC ULCER
     Route: 048
     Dates: start: 20100531
  15. FAMOTIDINE. [Concomitant]
     Active Substance: FAMOTIDINE
     Indication: PROPHYLAXIS
  16. ACICLOVIR [Concomitant]
     Active Substance: ACYCLOVIR
     Indication: PROPHYLAXIS
  17. MORPHINE [Concomitant]
     Active Substance: MORPHINE
     Indication: ABDOMINAL PAIN
     Dosage: 10MG Q2HOURS PRN
     Dates: start: 20100713

REACTIONS (3)
  - Anaemia [Recovered/Resolved]
  - Adrenal insufficiency [Recovered/Resolved]
  - Neutropenic sepsis [Recovered/Resolved]

NARRATIVE: CASE EVENT DATE: 20100728
